FAERS Safety Report 8448025-3 (Version None)
Quarter: 2012Q2

REPORT INFORMATION
  Report Type: 
  Country: None (occurrence: None)
  Receive Date: 20120612
  Receipt Date: 20120530
  Transmission Date: 20120825
  Serious: Yes (Hospitalization, Other)
  Sender: FDA-Public Use
  Company Number: 2012SP019849

PATIENT
  Age: 50 Year
  Sex: Female

DRUGS (2)
  1. REBETOL [Suspect]
     Indication: HEPATITIS C
     Dosage: 1000 MG;QD;PO, 600 MG;QD;PO
     Route: 048
     Dates: start: 20120304
  2. PEG-INTRON [Suspect]
     Indication: HEPATITIS C
     Dosage: 120 MCG;QW;SC
     Route: 058
     Dates: start: 20120304

REACTIONS (20)
  - FALL [None]
  - WEIGHT DECREASED [None]
  - DEPRESSION [None]
  - DECREASED APPETITE [None]
  - INSOMNIA [None]
  - FATIGUE [None]
  - DISEASE RECURRENCE [None]
  - CONTUSION [None]
  - DIZZINESS [None]
  - BLOOD PRESSURE DECREASED [None]
  - DYSGEUSIA [None]
  - SKELETAL INJURY [None]
  - NAUSEA [None]
  - RASH [None]
  - DRUG INEFFECTIVE [None]
  - ASTHENIA [None]
  - INAPPROPRIATE SCHEDULE OF DRUG ADMINISTRATION [None]
  - DRY MOUTH [None]
  - DRY THROAT [None]
  - ANAEMIA [None]
